FAERS Safety Report 8489240-2 (Version None)
Quarter: 2012Q3

REPORT INFORMATION
  Report Type: 
  Country: None (occurrence: None)
  Receive Date: 20120705
  Receipt Date: 20120702
  Transmission Date: 20120928
  Serious: Yes (Other)
  Sender: FDA-Public Use
  Company Number: GT-BAYER-2012-065105

PATIENT

DRUGS (2)
  1. AVELOX [Suspect]
  2. CELEBREX [Interacting]

REACTIONS (2)
  - TACHYCARDIA [None]
  - ASPHYXIA [None]
